FAERS Safety Report 6015863-6 (Version None)
Quarter: 2008Q4

REPORT INFORMATION
  Report Type: 
  Country: None (occurrence: None)
  Receive Date: 20081222
  Receipt Date: 20081219
  Transmission Date: 20090506
  Serious: Yes (Death, Hospitalization)
  Sender: FDA-Public Use
  Company Number: A0761177A

PATIENT
  Sex: Male

DRUGS (8)
  1. AVANDIA [Suspect]
     Dosage: 4MG TWICE PER DAY
     Route: 048
     Dates: start: 19990301, end: 20040101
  2. REZULIN [Concomitant]
  3. GLUCOPHAGE [Concomitant]
  4. HUMULIN [Concomitant]
  5. TOPROL-XL [Concomitant]
  6. ATENOLOL [Concomitant]
  7. LEXAPRO [Concomitant]
  8. ALPRAZOLAM [Concomitant]

REACTIONS (5)
  - CARDIAC FAILURE CONGESTIVE [None]
  - DEATH [None]
  - ISCHAEMIC CARDIOMYOPATHY [None]
  - MYOCARDIAL INFARCTION [None]
  - RENAL FAILURE [None]
